FAERS Safety Report 10663867 (Version 2)
Quarter: 2015Q1

REPORT INFORMATION
  Report Type: Spontaneous
  Country: US (occurrence: None)
  Receive Date: 20141217
  Receipt Date: 20150113
  Transmission Date: 20150720
  Serious: Yes (Hospitalization, Other)
  Sender: FDA-Public Use
  Company Number: 2014-US-016237

PATIENT
  Age: 82 Year
  Sex: Male
  Weight: 61.7 kg

DRUGS (1)
  1. XYREM [Suspect]
     Active Substance: SODIUM OXYBATE
     Indication: NARCOLEPSY
     Route: 048
     Dates: start: 200411

REACTIONS (3)
  - Increased tendency to bruise [None]
  - Pneumonia aspiration [None]
  - Weight decreased [None]

NARRATIVE: CASE EVENT DATE: 201407
